FAERS Safety Report 15709388 (Version 2)
Quarter: 2019Q1

REPORT INFORMATION
  Report Type: Spontaneous
  Country: US (occurrence: US)
  Receive Date: 20181211
  Receipt Date: 20190225
  Transmission Date: 20190417
  Serious: No
  Sender: FDA-Public Use
  Company Number: US-VERTEX PHARMACEUTICALS-2018-009327

PATIENT
  Sex: Female

DRUGS (1)
  1. SYMDEKO [Suspect]
     Active Substance: IVACAFTOR\TEZACAFTOR
     Indication: CYSTIC FIBROSIS
     Dosage: 100 MG TEZACAFTOR/ 150 MG IVACAFTOR AM; 150 MG IVACAFTOR PM WITH FAT CONTAINING FOOD
     Route: 048
     Dates: start: 20180418, end: 20181016

REACTIONS (1)
  - Respiratory tract congestion [Unknown]
